FAERS Safety Report 18978245 (Version 1)
Quarter: 2021Q1

REPORT INFORMATION
  Report Type: Spontaneous
  Country: US (occurrence: US)
  Receive Date: 20210307
  Receipt Date: 20210307
  Transmission Date: 20210420
  Serious: No
  Sender: FDA-Public Use
  Company Number: US-SA-2021SA073945

PATIENT
  Age: 58 Year
  Sex: Female

DRUGS (1)
  1. DUPIXENT [Suspect]
     Active Substance: DUPILUMAB
     Dosage: 300 MG
     Route: 048
     Dates: start: 202102

REACTIONS (4)
  - Seborrhoeic dermatitis [Unknown]
  - Skin exfoliation [Unknown]
  - Incorrect route of product administration [Unknown]
  - Rash [Unknown]

NARRATIVE: CASE EVENT DATE: 202102
